FAERS Safety Report 8571894-3 (Version None)
Quarter: 2012Q3

REPORT INFORMATION
  Report Type: 
  Country: None (occurrence: None)
  Receive Date: 20120806
  Receipt Date: 20120727
  Transmission Date: 20120928
  Serious: Yes (Hospitalization)
  Sender: FDA-Public Use
  Company Number: BR-BAYER-2012-078568

PATIENT
  Age: 67 Year
  Sex: Male
  Weight: 62.2 kg

DRUGS (7)
  1. LEVOTHYROXINE SODIUM [Concomitant]
     Indication: HYPOTHYROIDISM
     Dosage: 75 ?G, QD
     Route: 048
     Dates: start: 20061201
  2. NEXAVAR [Suspect]
     Dosage: 200 MG, BID
     Route: 048
  3. SPIRONOLACTONE [Concomitant]
     Indication: HYPERTENSION
     Dosage: 25 MG, BIW
     Route: 048
     Dates: start: 20060601
  4. AMLODIPINE [Concomitant]
     Indication: HYPERTENSION
     Dosage: 25 MG, QD
     Route: 048
     Dates: start: 20060601
  5. ATENOLOL [Concomitant]
     Indication: HYPERTENSION
     Dosage: 25 MG, BID
     Route: 048
     Dates: start: 20060601
  6. NEXAVAR [Suspect]
     Indication: METASTATIC RENAL CELL CARCINOMA
     Dosage: 400 MG, BID
     Route: 048
     Dates: start: 20100304
  7. BUMETANIDE [Concomitant]
     Indication: HYPERTENSION
     Dosage: 0.5 MG, QD
     Route: 048
     Dates: start: 20060601

REACTIONS (5)
  - OEDEMA [None]
  - PAIN [None]
  - DEEP VEIN THROMBOSIS [None]
  - LIMB DISCOMFORT [None]
  - ERYTHEMA [None]
